FAERS Safety Report 7656950-6 (Version None)
Quarter: 2011Q3

REPORT INFORMATION
  Report Type: 
  Country: None (occurrence: None)
  Receive Date: 20110804
  Receipt Date: 20110722
  Transmission Date: 20111222
  Serious: Yes (Hospitalization)
  Sender: FDA-Public Use
  Company Number: CA-SANOFI-AVENTIS-2011SA048087

PATIENT
  Age: 81 Year
  Sex: Male
  Weight: 113 kg

DRUGS (7)
  1. ASPIRIN [Concomitant]
  2. FUROSEMIDE [Concomitant]
  3. ROSUVASTATIN [Concomitant]
  4. METFORMIN HCL [Concomitant]
  5. NSAID'S [Concomitant]
  6. WARFARIN [Concomitant]
     Dosage: 28MG WEEKLY
  7. DRONEDARONE HCL [Suspect]
     Indication: ATRIAL FIBRILLATION
     Route: 048
     Dates: start: 20110224, end: 20110329

REACTIONS (1)
  - CARDIAC PACEMAKER INSERTION [None]
